FAERS Safety Report 4632626-4 (Version None)
Quarter: 2005Q2

REPORT INFORMATION
  Report Type: 
  Country: None (occurrence: None)
  Receive Date: 20050331
  Receipt Date: 20040813
  Transmission Date: 20051028
  Serious: Yes (Other)
  Sender: FDA-Public Use
  Company Number: 200414007BCC

PATIENT
  Age: 53 Year
  Sex: Female
  Weight: 54.8852 kg

DRUGS (1)
  1. ALEVE [Suspect]
     Indication: PAIN
     Dosage: 440 MG, ONCE, ORAL
     Route: 048
     Dates: start: 20040813

REACTIONS (6)
  - ANAPHYLACTIC REACTION [None]
  - DYSPHONIA [None]
  - PRURITUS GENERALISED [None]
  - RASH GENERALISED [None]
  - SWELLING FACE [None]
  - WHEEZING [None]
